FAERS Safety Report 5827305-1 (Version None)
Quarter: 2008Q3

REPORT INFORMATION
  Report Type: 
  Country: None (occurrence: None)
  Receive Date: 20080725
  Receipt Date: 20080718
  Transmission Date: 20090109
  Serious: Yes (Hospitalization)
  Sender: FDA-Public Use
  Company Number: GXKR2008GB06768

PATIENT
  Age: 81 Year
  Sex: Male

DRUGS (8)
  1. OMEPRZOLE (NGX) (OMEPRAZOLE) UNKNOWN [Suspect]
     Dosage: 40 MG/DAY, UNKNOWN
  2. ISOSORBIDE MONONITRATE [Concomitant]
  3. ATENOLOL [Concomitant]
  4. ATORVASTATIN CALCIUM [Concomitant]
  5. LISINOPRIL [Concomitant]
  6. QUININE (QUININE) [Concomitant]
  7. AMLODIPINE [Concomitant]
  8. ACETYLSALICYLIC ACID SRT [Concomitant]

REACTIONS (17)
  - ATRIAL FLUTTER [None]
  - BALANCE DISORDER [None]
  - BRADYCARDIA [None]
  - DIZZINESS [None]
  - FALL [None]
  - HEART RATE IRREGULAR [None]
  - HYPOCALCAEMIA [None]
  - HYPOKALAEMIA [None]
  - HYPOMAGNESAEMIA [None]
  - HYPOTENSION [None]
  - MUSCLE SPASMS [None]
  - NAUSEA [None]
  - PARAESTHESIA [None]
  - POLYURIA [None]
  - URINARY INCONTINENCE [None]
  - URINARY TRACT INFECTION [None]
  - VOMITING [None]
